FAERS Safety Report 9011859 (Version 1)
Quarter: 2012Q4

REPORT INFORMATION
  Report Type: Spontaneous
  Country: US (occurrence: None)
  Receive Date: 20121228
  Receipt Date: 20121228
  Transmission Date: 20130627
  Serious: Yes (Other)
  Sender: FDA-Public Use
  Company Number: JPI-P-026794

PATIENT
  Age: 44 Year
  Sex: Female

DRUGS (2)
  1. XYREM [Suspect]
     Indication: NARCOLEPSY
     Dosage: 9 GM (4.5 GM, 2 IN 1 d)
     Route: 048
     Dates: start: 20110620
  2. XYREM [Suspect]
     Indication: NARCOLEPSY

REACTIONS (11)
  - Hysterectomy [None]
  - Flushing [None]
  - Muscle spasms [None]
  - Anxiety [None]
  - Feeling hot [None]
  - Nausea [None]
  - Feeling jittery [None]
  - Headache [None]
  - Initial insomnia [None]
  - Somnolence [None]
  - Malaise [None]
